FAERS Safety Report 21739390 (Version 2)
Quarter: 2022Q4

REPORT INFORMATION
  Report Type: Report from Study
  Country: JP (occurrence: JP)
  Receive Date: 20221216
  Receipt Date: 20221223
  Transmission Date: 20230113
  Serious: Yes (Death, Other)
  Sender: FDA-Public Use
  Company Number: None

PATIENT

DRUGS (6)
  1. SOTROVIMAB [Suspect]
     Active Substance: SOTROVIMAB
     Indication: COVID-19
     Dosage: 500 MG, QD
     Route: 042
     Dates: start: 20220912, end: 20220912
  2. SOTROVIMAB [Suspect]
     Active Substance: SOTROVIMAB
     Indication: SARS-CoV-2 test positive
  3. SOTROVIMAB [Suspect]
     Active Substance: SOTROVIMAB
     Indication: COVID-19 pneumonia
  4. MEROPENEM [Concomitant]
     Active Substance: MEROPENEM
     Indication: Pneumonia bacterial
     Dosage: 1 G, QD
     Route: 042
     Dates: start: 20220912, end: 20220913
  5. VEKLURY [Concomitant]
     Active Substance: REMDESIVIR
     Indication: SARS-CoV-2 test positive
     Dosage: 200 MG, QD
     Route: 042
     Dates: start: 20220912, end: 20220912
  6. VEKLURY [Concomitant]
     Active Substance: REMDESIVIR
     Indication: COVID-19 pneumonia
     Dosage: 100 MG, QD
     Route: 042
     Dates: start: 20220913, end: 20220913

REACTIONS (2)
  - Death [Fatal]
  - Off label use [Unknown]

NARRATIVE: CASE EVENT DATE: 20220914
